FAERS Safety Report 4977434-X (Version None)
Quarter: 2006Q2

REPORT INFORMATION
  Report Type: 
  Country: None (occurrence: None)
  Receive Date: 20060413
  Receipt Date: 20060330
  Transmission Date: 20061013
  Serious: Yes (Hospitalization)
  Sender: FDA-Public Use
  Company Number: 2006-BF-03631RO

PATIENT
  Age: 39 Year
  Sex: Male

DRUGS (3)
  1. METHADONE HCL [Suspect]
     Dosage: 120 MG DAILY
  2. DOXEPIN HCL [Suspect]
     Indication: ANXIETY DISORDER
     Dosage: 100 MG DAILY
  3. METOPROLOL SUCCINATE [Suspect]
     Indication: TACHYCARDIA
     Dosage: 50 MG, DAILY

REACTIONS (7)
  - BRADYCARDIA [None]
  - DRUG WITHDRAWAL SYNDROME [None]
  - ELECTROCARDIOGRAM QT PROLONGED [None]
  - SINUS TACHYCARDIA [None]
  - SYNCOPE [None]
  - TACHYCARDIA [None]
  - TORSADE DE POINTES [None]
